FAERS Safety Report 20523470 (Version 2)
Quarter: 2022Q2

REPORT INFORMATION
  Report Type: Spontaneous
  Country: US (occurrence: None)
  Receive Date: 20220228
  Receipt Date: 20220414
  Transmission Date: 20220721
  Serious: No
  Sender: FDA-Public Use
  Company Number: 2022A062342

PATIENT
  Age: 28968 Day
  Sex: Female
  Weight: 57.6 kg

DRUGS (1)
  1. BYDUREON BCISE [Suspect]
     Active Substance: EXENATIDE
     Indication: Type 2 diabetes mellitus
     Dosage: 2MG/ML ONCE A WEEK
     Route: 058

REACTIONS (6)
  - Skin mass [Not Recovered/Not Resolved]
  - Injection site nodule [Not Recovered/Not Resolved]
  - Incorrect dose administered by device [Unknown]
  - Wrong technique in device usage process [Unknown]
  - Device use issue [Unknown]
  - Device leakage [Unknown]

NARRATIVE: CASE EVENT DATE: 20220206
